FAERS Safety Report 4979999-0 (Version None)
Quarter: 2006Q2

REPORT INFORMATION
  Report Type: 
  Country: None (occurrence: None)
  Receive Date: 20060421
  Receipt Date: 20051003
  Transmission Date: 20061013
  Serious: Yes (Hospitalization)
  Sender: FDA-Public Use
  Company Number: US-MERCK-0510USA02653

PATIENT
  Age: 40 Year
  Sex: Male
  Weight: 99 kg

DRUGS (10)
  1. VIOXX [Suspect]
     Indication: PAIN MANAGEMENT
     Route: 048
     Dates: start: 19990101, end: 20001001
  2. GLUCOPHAGE [Concomitant]
     Route: 065
  3. GLUCOTROL [Concomitant]
     Route: 065
  4. ACTOS [Concomitant]
     Route: 065
  5. NEURONTIN [Concomitant]
     Route: 065
  6. LIPITOR [Concomitant]
     Route: 065
  7. HYZAAR [Concomitant]
     Route: 065
  8. DEMADEX [Concomitant]
     Route: 065
  9. TYLENOL (CAPLET) [Concomitant]
     Route: 065
  10. ASPIRIN [Concomitant]
     Route: 065

REACTIONS (5)
  - ANGINA UNSTABLE [None]
  - ARTERIAL OCCLUSIVE DISEASE [None]
  - CHEST PAIN [None]
  - HEADACHE [None]
  - MYOCARDIAL INFARCTION [None]
